FAERS Safety Report 19258874 (Version 1)
Quarter: 2021Q2

REPORT INFORMATION
  Report Type: Spontaneous
  Country: CN (occurrence: CN)
  Receive Date: 20210514
  Receipt Date: 20210514
  Transmission Date: 20210717
  Serious: Yes (Other)
  Sender: FDA-Public Use
  Company Number: CN-PFIZER INC-2021489024

PATIENT
  Age: 84 Year
  Sex: Male

DRUGS (1)
  1. MEPEM [Suspect]
     Active Substance: MEROPENEM
     Indication: ANTI-INFECTIVE THERAPY
     Dosage: 1 G, 2X/DAY (Q12H)
     Route: 041
     Dates: start: 20210406, end: 20210408

REACTIONS (1)
  - Mania [Recovering/Resolving]

NARRATIVE: CASE EVENT DATE: 20210408
